FAERS Safety Report 7719315-4 (Version None)
Quarter: 2011Q3

REPORT INFORMATION
  Report Type: 
  Country: None (occurrence: None)
  Receive Date: 20110830
  Receipt Date: 20110822
  Transmission Date: 20111222
  Serious: Yes (Other)
  Sender: FDA-Public Use
  Company Number: JP-BAYER-2011-046374

PATIENT
  Age: 42 Year
  Sex: Female

DRUGS (2)
  1. VOLTAREN [Concomitant]
     Indication: DYSMENORRHOEA
     Dosage: 100 MG, UNK
     Route: 048
     Dates: start: 20110709
  2. YAZ [Suspect]
     Dosage: 1 DF, QD
     Route: 048

REACTIONS (2)
  - PREGNANCY ON CONTRACEPTIVE [None]
  - ABORTION SPONTANEOUS [None]
